FAERS Safety Report 7643401-0 (Version None)
Quarter: 2011Q3

REPORT INFORMATION
  Report Type: 
  Country: None (occurrence: None)
  Receive Date: 20110729
  Receipt Date: 20110721
  Transmission Date: 20111222
  Serious: Yes (Hospitalization, Other)
  Sender: FDA-Public Use
  Company Number: US-BAYER-201024173NA

PATIENT
  Age: 36 Year
  Sex: Female
  Weight: 157 kg

DRUGS (4)
  1. GLUMETZA ER [Concomitant]
     Dosage: 500 MG, UNK
     Dates: start: 20070219, end: 20070628
  2. YASMIN [Suspect]
     Dosage: UNK
     Route: 048
     Dates: start: 20070501, end: 20070601
  3. PROMETHAZINE [Concomitant]
     Dosage: 25 MG, UNK
     Dates: start: 20070515
  4. DIPHENOXYLATE HCL + ATROPINE SULFATE [Concomitant]
     Dosage: UNK
     Dates: start: 20070515

REACTIONS (3)
  - DEEP VEIN THROMBOSIS [None]
  - ANXIETY [None]
  - DEPRESSION [None]
